FAERS Safety Report 8719693 (Version 3)
Quarter: 2014Q1

REPORT INFORMATION
  Report Type: Spontaneous
  Country: US (occurrence: US)
  Receive Date: 20120813
  Receipt Date: 20140127
  Transmission Date: 20141002
  Serious: Yes (Hospitalization)
  Sender: FDA-Public Use
  Company Number: US-BAYER-2012-079001

PATIENT
  Age: 24 Year
  Sex: Female
  Weight: 105 kg

DRUGS (4)
  1. YAZ [Suspect]
     Dosage: UNK
     Dates: start: 201005, end: 20100517
  2. NEXIUM [Concomitant]
  3. PLAVIX [Concomitant]
  4. ZOCOR [Concomitant]

REACTIONS (9)
  - Embolic stroke [None]
  - Hemiplegia [None]
  - Injury [None]
  - Pain [None]
  - General physical health deterioration [None]
  - Emotional distress [None]
  - Anxiety [None]
  - Pain [None]
  - Mental disorder [None]
